FAERS Safety Report 7775523-8 (Version None)
Quarter: 2011Q3

REPORT INFORMATION
  Report Type: 
  Country: None (occurrence: None)
  Receive Date: 20110921
  Receipt Date: 20110913
  Transmission Date: 20111222
  Serious: Yes (Hospitalization)
  Sender: FDA-Public Use
  Company Number: 2011SP016578

PATIENT
  Age: 24 Year
  Sex: Female
  Weight: 89.8122 kg

DRUGS (1)
  1. NUVARING [Suspect]
     Indication: CONTRACEPTION
     Dates: start: 20090409, end: 20090424

REACTIONS (17)
  - PNEUMONIA [None]
  - SINUS TACHYCARDIA [None]
  - HYPERCOAGULATION [None]
  - PULMONARY VALVE INCOMPETENCE [None]
  - JOINT INJURY [None]
  - PLEURISY [None]
  - BLOOD CHOLESTEROL INCREASED [None]
  - CELLULITIS [None]
  - PULMONARY EMBOLISM [None]
  - GASTROOESOPHAGEAL REFLUX DISEASE [None]
  - DIABETES MELLITUS [None]
  - THROMBOSIS [None]
  - MENTAL DISORDER [None]
  - MUSCULOSKELETAL CHEST PAIN [None]
  - URINE KETONE BODY PRESENT [None]
  - ARTHRALGIA [None]
  - URINARY TRACT INFECTION [None]
